FAERS Safety Report 5247910-3 (Version None)
Quarter: 2007Q1

REPORT INFORMATION
  Report Type: 
  Country: None (occurrence: None)
  Receive Date: 20070226
  Receipt Date: 20070226
  Transmission Date: 20070707
  Serious: No
  Sender: FDA-Public Use
  Company Number: None

PATIENT
  Sex: Female

DRUGS (2)
  1. CITALOPRAM HYDROBROMIDE, 40 MG, DR. REDDY'S [Suspect]
     Indication: ANXIETY
     Dosage: 40 MG 1/2 TABLET DAILY BY MOUTH
     Route: 048
     Dates: start: 20070214, end: 20070222
  2. CITALOPRAM HYDROBROMIDE, 40 MG, DR. REDDY'S [Suspect]
     Indication: DEPRESSION
     Dosage: 40 MG 1/2 TABLET DAILY BY MOUTH
     Route: 048
     Dates: start: 20070214, end: 20070222

REACTIONS (4)
  - HEADACHE [None]
  - INSOMNIA [None]
  - NIGHT SWEATS [None]
  - PHARMACEUTICAL PRODUCT COMPLAINT [None]
